FAERS Safety Report 21978488 (Version 6)
Quarter: 2024Q2

REPORT INFORMATION
  Report Type: Spontaneous
  Country: US (occurrence: US)
  Receive Date: 20230210
  Receipt Date: 20240620
  Transmission Date: 20240715
  Serious: No
  Sender: FDA-Public Use
  Company Number: US-PFIZER INC-PV202300024862

PATIENT
  Age: 81 Year
  Sex: Female
  Weight: 63.6 kg

DRUGS (2)
  1. IBRANCE [Suspect]
     Active Substance: PALBOCICLIB
     Dosage: 100 MG
  2. IBRANCE [Suspect]
     Active Substance: PALBOCICLIB
     Dosage: 125 MG, CYCLIC (1 TABLET ORALLY DAILY. ADMINISTER ON DAYS 1 THROUGH 21 OF A 28-DAY)
     Route: 048

REACTIONS (2)
  - Memory impairment [Unknown]
  - Confusional state [Unknown]
